FAERS Safety Report 6823758-0 (Version None)
Quarter: 2010Q3

REPORT INFORMATION
  Report Type: 
  Country: None (occurrence: None)
  Receive Date: 20100708
  Receipt Date: 20060905
  Transmission Date: 20110219
  Serious: No
  Sender: FDA-Public Use
  Company Number: US-PFIZER INC-2006109388

PATIENT
  Sex: Female
  Weight: 54.43 kg

DRUGS (3)
  1. CHANTIX [Suspect]
     Indication: SMOKING CESSATION THERAPY
     Dates: start: 20060828
  2. CLIMARA [Concomitant]
     Route: 062
  3. ZOCOR [Concomitant]
     Route: 048

REACTIONS (4)
  - ABNORMAL DREAMS [None]
  - ASTHENIA [None]
  - INSOMNIA [None]
  - NAUSEA [None]
